FAERS Safety Report 6264466-7 (Version None)
Quarter: 2009Q3

REPORT INFORMATION
  Report Type: 
  Country: None (occurrence: None)
  Receive Date: 20090710
  Receipt Date: 20090708
  Transmission Date: 20100115
  Serious: No
  Sender: FDA-Public Use
  Company Number: US-B.I. PHARMACEUTICALS,INC./RIDGEFIELD-2009-BP-07138BP

PATIENT
  Age: 53 Year
  Sex: Female
  Weight: 95.45 kg

DRUGS (9)
  1. MIRAPEX [Suspect]
     Indication: RESTLESS LEGS SYNDROME
     Dosage: 0.5 MG
     Route: 048
     Dates: start: 20080112, end: 20090526
  2. NEXIUM [Concomitant]
     Dosage: 80 MG
  3. CHANTIX [Concomitant]
     Dosage: 2 MG
  4. FEXOFENADINE [Concomitant]
     Dosage: 120 MG
  5. HALOBETASOL [Concomitant]
  6. NORVASC [Concomitant]
     Dosage: 5 MG
  7. ALBUTEROL [Concomitant]
  8. TRIAMTERENE AND HYDROCHLOROTHIAZIDE [Concomitant]
  9. LEXAPRO [Concomitant]

REACTIONS (1)
  - SKIN LESION [None]
